FAERS Safety Report 9928501 (Version 1)
Quarter: 2014Q1

REPORT INFORMATION
  Report Type: Spontaneous
  Country: US (occurrence: None)
  Receive Date: 20140226
  Receipt Date: 20140226
  Transmission Date: 20141002
  Serious: No
  Sender: FDA-Public Use
  Company Number: None

PATIENT
  Age: 62 Year
  Sex: Male
  Weight: 110 kg

DRUGS (1)
  1. IOHEXOL [Suspect]
     Indication: HYPERLIPIDAEMIA
     Dosage: 70 UNITS, ONCE, IV
     Route: 042
     Dates: start: 20140212, end: 20140212

REACTIONS (2)
  - Throat tightness [None]
  - Contrast media allergy [None]
